FAERS Safety Report 10006958 (Version 1)
Quarter: 2014Q1

REPORT INFORMATION
  Report Type: Spontaneous
  Country: US (occurrence: None)
  Receive Date: 20140312
  Receipt Date: 20140312
  Transmission Date: 20141002
  Serious: Yes (Hospitalization, Disabling, Other)
  Sender: FDA-Public Use
  Company Number: None

PATIENT
  Age: 62 Year
  Sex: Male
  Weight: 79.38 kg

DRUGS (1)
  1. TESTOSTERONE [Suspect]
     Dosage: NEEDLES ONCE DAILY APPLIED AS MEDICATED PATCH TO SKIN
     Route: 061

REACTIONS (2)
  - Anuria [None]
  - Bladder catheterisation [None]
